FAERS Safety Report 4862010-X (Version None)
Quarter: 2005Q4

REPORT INFORMATION
  Report Type: 
  Country: None (occurrence: None)
  Receive Date: 20051129
  Receipt Date: 20050922
  Transmission Date: 20060501
  Serious: Yes (Life-Threatening, Hospitalization, Other)
  Sender: FDA-Public Use
  Company Number: WAES 0509USA03570

PATIENT
  Age: 70 Year
  Sex: Male

DRUGS (4)
  1. VYTORIN [Suspect]
     Indication: ARTERIOSCLEROSIS
     Dosage: 10-80 MG/DAILY/PO; SEE IMAGE
     Route: 048
     Dates: end: 20050319
  2. VYTORIN [Suspect]
     Indication: HYPERLIPIDAEMIA
     Dosage: 10-80 MG/DAILY/PO; SEE IMAGE
     Route: 048
     Dates: end: 20050319
  3. VYTORIN [Suspect]
     Indication: ARTERIOSCLEROSIS
     Dosage: 10-80 MG/DAILY/PO; SEE IMAGE
     Route: 048
     Dates: start: 20050320, end: 20050811
  4. VYTORIN [Suspect]
     Indication: HYPERLIPIDAEMIA
     Dosage: 10-80 MG/DAILY/PO; SEE IMAGE
     Route: 048
     Dates: start: 20050320, end: 20050811

REACTIONS (4)
  - ASTHENIA [None]
  - BLOOD CREATINE PHOSPHOKINASE INCREASED [None]
  - HAEMATURIA [None]
  - MYALGIA [None]
